FAERS Safety Report 24061783 (Version 8)
Quarter: 2025Q4

REPORT INFORMATION
  Report Type: Spontaneous
  Country: US (occurrence: US)
  Receive Date: 20240708
  Receipt Date: 20251024
  Transmission Date: 20260118
  Serious: Yes (Other)
  Sender: APELLIS PHARMACEUTICALS
  Company Number: US-APELLIS PHARMACEUTICALS-APL-2023-002795

PATIENT

DRUGS (12)
  1. SYFOVRE [Suspect]
     Active Substance: PEGCETACOPLAN
     Indication: Dry age-related macular degeneration
     Dosage: UNK, OS
     Route: 031
     Dates: start: 20230510, end: 20230510
  2. LEVOTHYROXINE [Concomitant]
     Active Substance: LEVOTHYROXINE
     Indication: Product used for unknown indication
     Dosage: 175.000UG QD
     Route: 048
     Dates: start: 20210412
  3. LISINOPRIL [Concomitant]
     Active Substance: LISINOPRIL
     Indication: Product used for unknown indication
  4. MELOXICAM [Concomitant]
     Active Substance: MELOXICAM
     Indication: Product used for unknown indication
     Dosage: 7.500MG QD
     Route: 048
     Dates: start: 20210422
  5. SERTRALINE [Concomitant]
     Active Substance: SERTRALINE HYDROCHLORIDE
     Indication: Product used for unknown indication
     Dosage: FOR 90 DAYS
     Route: 048
     Dates: start: 20210412
  6. METFORMIN [Concomitant]
     Active Substance: METFORMIN HYDROCHLORIDE
     Indication: Product used for unknown indication
     Dosage: FOR 90 DAYS
     Route: 048
     Dates: start: 20210628
  7. MAXZIDE [Concomitant]
     Active Substance: HYDROCHLOROTHIAZIDE\TRIAMTERENE
     Indication: Product used for unknown indication
     Dosage: 37.5MG-25MG TABLET, 1 TAB QD, FOR 90 DAYS
     Route: 048
     Dates: start: 20210828
  8. COZAAR [Concomitant]
     Active Substance: LOSARTAN POTASSIUM
     Indication: Product used for unknown indication
     Dosage: 100.000MG QD
     Route: 048
     Dates: start: 20230724
  9. LIPITOR [Concomitant]
     Active Substance: ATORVASTATIN CALCIUM
     Indication: Product used for unknown indication
     Dosage: 20.000MG QD
     Route: 048
     Dates: start: 20230815
  10. OZEMPIC [Concomitant]
     Active Substance: SEMAGLUTIDE
     Indication: Product used for unknown indication
     Dosage: HALF DOSE
     Dates: start: 20230925
  11. TIMOPTIC [Concomitant]
     Active Substance: TIMOLOL MALEATE
     Indication: Product used for unknown indication
     Dosage: INTO THE RIGHT EYE FOR 360 DAYS
     Route: 047
     Dates: start: 20240816
  12. COSOPT [Concomitant]
     Active Substance: DORZOLAMIDE HYDROCHLORIDE\TIMOLOL MALEATE
     Indication: Product used for unknown indication
     Dosage: INTO THE LEFT EYE
     Route: 047
     Dates: end: 20241202

REACTIONS (33)
  - Glaucoma [Unknown]
  - Optic neuritis [Unknown]
  - Retinal occlusive vasculitis [Not Recovered/Not Resolved]
  - Open angle glaucoma [Unknown]
  - Visual impairment [Unknown]
  - Retinal vascular disorder [Unknown]
  - Glaucoma [Unknown]
  - Ocular hypertension [Unknown]
  - Blindness [Unknown]
  - Optic neuritis [Unknown]
  - Retinal vasculitis [Unknown]
  - Photopsia [Not Recovered/Not Resolved]
  - Iritis [Not Recovered/Not Resolved]
  - Intraocular pressure increased [Not Recovered/Not Resolved]
  - Eye naevus [Not Recovered/Not Resolved]
  - Eye pain [Unknown]
  - Visual acuity reduced [Unknown]
  - Weight decreased [Unknown]
  - Pain in extremity [Unknown]
  - Fluid retention [Unknown]
  - Arthralgia [Unknown]
  - Muscular weakness [Unknown]
  - Musculoskeletal discomfort [Unknown]
  - Depression [Unknown]
  - Anxiety [Unknown]
  - Hyperglycaemia [Unknown]
  - Iris neovascularisation [Unknown]
  - Eustachian tube dysfunction [Unknown]
  - Fall [Unknown]
  - Contusion [Unknown]
  - Arthralgia [Unknown]
  - Discomfort [Unknown]
  - Appetite disorder [Unknown]

NARRATIVE: CASE EVENT DATE: 20230519
